FAERS Safety Report 8896511 (Version 1)
Quarter: 2012Q4

REPORT INFORMATION
  Report Type: 
  Country: US (occurrence: US)
  Receive Date: 20121108
  Receipt Date: 20121108
  Transmission Date: 20130627
  Serious: No
  Sender: FDA-Public Use
  Company Number: US-AMGEN-USASP2012026469

PATIENT
  Sex: Female

DRUGS (11)
  1. ENBREL [Suspect]
     Indication: PRODUCT USED FOR UNKNOWN INDICATION
     Dosage: 50 mg, qwk
     Route: 058
  2. CALTRATE + D                       /00188401/ [Concomitant]
  3. PLAQUENIL                          /00072603/ [Concomitant]
     Dosage: 200 mg, UNK
  4. AMBIEN [Concomitant]
     Dosage: 5 mg, UNK
  5. CELEBREX [Concomitant]
     Dosage: 200 mg, UNK
  6. ATENOLOL [Concomitant]
     Dosage: 50 mg, UNK
  7. ESTROPIPATE [Concomitant]
     Dosage: 1.5 mg, UNK
  8. HYDROCODONE/APAP [Concomitant]
  9. ZANAFLEX [Concomitant]
     Dosage: 4 mg, UNK
  10. PREMARIN [Concomitant]
  11. FISH OIL [Concomitant]
     Dosage: 1400 mg, UNK

REACTIONS (1)
  - Therapeutic response decreased [Unknown]
